FAERS Safety Report 5255016-2 (Version None)
Quarter: 2007Q1

REPORT INFORMATION
  Report Type: 
  Country: None (occurrence: None)
  Receive Date: 20070228
  Receipt Date: 20070214
  Transmission Date: 20070707
  Serious: Yes (Congenital Anomaly, Other)
  Sender: FDA-Public Use
  Company Number: 2007BI003985

PATIENT
  Age: 1 Decade
  Sex: Female

DRUGS (1)
  1. AVONEX [Suspect]
     Indication: MULTIPLE SCLEROSIS
     Dosage: 30 UG;QW;TRPL
     Route: 064
     Dates: start: 20030101, end: 20060201

REACTIONS (3)
  - CARDIAC MURMUR [None]
  - CONGENITAL ACROCHORDON [None]
  - DRUG EXPOSURE DURING PREGNANCY [None]
